FAERS Safety Report 7974998-9 (Version None)
Quarter: 2011Q4

REPORT INFORMATION
  Report Type: 
  Country: None (occurrence: None)
  Receive Date: 20111213
  Receipt Date: 20111031
  Transmission Date: 20120403
  Serious: No
  Sender: FDA-Public Use
  Company Number: US-AMGEN-USASP2011056419

PATIENT
  Age: 58 Year
  Sex: Female

DRUGS (1)
  1. ENBREL [Suspect]
     Indication: RHEUMATOID ARTHRITIS
     Dosage: 50 MG, QWK
     Dates: start: 20070401

REACTIONS (11)
  - CATARACT [None]
  - VISUAL ACUITY REDUCED [None]
  - SPINAL COLUMN STENOSIS [None]
  - DIZZINESS [None]
  - FALL [None]
  - INJECTION SITE PAIN [None]
  - HERNIA [None]
  - VERTIGO [None]
  - SPINAL COLUMN INJURY [None]
  - INJECTION SITE HAEMATOMA [None]
  - NERVE ROOT COMPRESSION [None]
